FAERS Safety Report 4513265-2 (Version None)
Quarter: 2004Q4

REPORT INFORMATION
  Report Type: 
  Country: None (occurrence: None)
  Receive Date: 20041130
  Receipt Date: 20041123
  Transmission Date: 20050328
  Serious: Yes (Hospitalization)
  Sender: FDA-Public Use
  Company Number: FI-ROCHE-387020

PATIENT
  Age: 64 Year
  Sex: Male

DRUGS (19)
  1. DACLIZUMAB [Suspect]
     Route: 042
     Dates: start: 20040709, end: 20040709
  2. DACLIZUMAB [Suspect]
     Route: 042
     Dates: start: 20040716, end: 20040716
  3. MYCOPHENOLATE MOFETIL [Suspect]
     Route: 042
     Dates: start: 20040710, end: 20040714
  4. MYCOPHENOLATE MOFETIL [Suspect]
     Route: 048
     Dates: start: 20040715
  5. TACROLIMUS [Suspect]
     Dosage: DOSE ADJUSTED TO REACH PREDEFINED TARGET LEVELS.
     Route: 048
     Dates: start: 20040714, end: 20040725
  6. TACROLIMUS [Suspect]
     Route: 048
     Dates: start: 20040726
  7. METHYLPREDNISOLONE [Suspect]
     Dosage: DOSE TAPERED ACCORDING TO LOCAL PROTOCOL.
     Route: 065
     Dates: start: 20040710, end: 20040724
  8. METHYLPREDNISOLONE [Suspect]
     Route: 065
     Dates: start: 20040725
  9. PIPERACILLIN SODIUM [Concomitant]
     Dates: start: 20040709, end: 20040713
  10. TOBRAMYCINSULFAT [Concomitant]
     Dates: start: 20040709, end: 20040713
  11. FLUKONAZOL [Concomitant]
     Indication: INFECTION PROPHYLAXIS
     Dates: start: 20040709, end: 20040713
  12. OXYCONTIN [Concomitant]
     Indication: PAIN
     Dates: start: 20040709, end: 20040715
  13. ESOMEPRAZOLE [Concomitant]
     Indication: PROPHYLAXIS
     Dates: start: 20040709, end: 20040713
  14. DALTEPARIN-NATRIUM [Concomitant]
     Indication: THROMBOSIS PROPHYLAXIS
     Dates: start: 20040709, end: 20040714
  15. FUROSEMIDE [Concomitant]
     Dates: start: 20040709, end: 20040709
  16. ACETYLSALICYLIC ACID [Concomitant]
     Indication: THROMBOSIS PROPHYLAXIS
     Dates: start: 20040715
  17. METOPROLOLTARTRAT [Concomitant]
     Indication: HYPERTENSION
     Dates: start: 20040720
  18. TRIMETOPRIM [Concomitant]
     Indication: INFECTION PROPHYLAXIS
  19. ZOPICLON [Concomitant]
     Indication: INSOMNIA

REACTIONS (3)
  - CYTOMEGALOVIRUS INFECTION [None]
  - GASTRIC ULCER [None]
  - HELICOBACTER INFECTION [None]
